FAERS Safety Report 16229042 (Version 3)
Quarter: 2019Q2

REPORT INFORMATION
  Report Type: Spontaneous
  Country: RU (occurrence: RU)
  Receive Date: 20190423
  Receipt Date: 20190606
  Transmission Date: 20190711
  Serious: Yes (Death, Other)
  Sender: FDA-Public Use
  Company Number: RU-ACTELION-A-CH2019-189342

PATIENT
  Age: 15 Year
  Sex: Male
  Weight: 55 kg

DRUGS (5)
  1. SILDENAFIL. [Concomitant]
     Active Substance: SILDENAFIL
     Indication: PULMONARY ARTERIAL HYPERTENSION
     Dosage: 20 MG, TID
     Route: 048
     Dates: start: 20140101, end: 20190410
  2. OPSUMIT [Suspect]
     Active Substance: MACITENTAN
     Indication: HEART DISEASE CONGENITAL
     Dosage: 10 MG, OD
     Route: 048
     Dates: start: 20180701, end: 20190410
  3. WARFARIN [Concomitant]
     Active Substance: WARFARIN
     Dosage: 25 MG, QD
  4. VEROSPIRON [Concomitant]
     Active Substance: SPIRONOLACTONE
     Dosage: 25 MG, QD
  5. OPSUMIT [Suspect]
     Active Substance: MACITENTAN
     Indication: PULMONARY ARTERIAL HYPERTENSION

REACTIONS (5)
  - Vomiting [Unknown]
  - Oesophagogastroduodenoscopy [Unknown]
  - Respiratory tract infection viral [Unknown]
  - Death [Fatal]
  - Abdominal pain upper [Unknown]

NARRATIVE: CASE EVENT DATE: 20190410
